FAERS Safety Report 17362430 (Version 5)
Quarter: 2020Q2

REPORT INFORMATION
  Report Type: Spontaneous
  Country: US (occurrence: US)
  Receive Date: 20200203
  Receipt Date: 20200608
  Transmission Date: 20200713
  Serious: No
  Sender: FDA-Public Use
  Company Number: US-LEXICON PHARMACEUTICALS, INC-20-1606-00067

PATIENT
  Age: 76 Year
  Sex: Female

DRUGS (2)
  1. LANREOTIDE [Concomitant]
     Active Substance: LANREOTIDE
  2. XERMELO [Suspect]
     Active Substance: TELOTRISTAT ETHYL
     Indication: CARCINOID TUMOUR OF THE SMALL BOWEL
     Dates: start: 20200114

REACTIONS (4)
  - Rectal haemorrhage [Unknown]
  - Rash [Not Recovered/Not Resolved]
  - Proctalgia [Unknown]
  - Pruritus [Not Recovered/Not Resolved]
